FAERS Safety Report 17403532 (Version 1)
Quarter: 2020Q1

REPORT INFORMATION
  Report Type: Spontaneous
  Country: IT (occurrence: IT)
  Receive Date: 20200211
  Receipt Date: 20200211
  Transmission Date: 20200409
  Serious: Yes (Life-Threatening)
  Sender: FDA-Public Use
  Company Number: IT-GUERBET-IT-20200013

PATIENT
  Age: 67 Year
  Sex: Male
  Weight: 80 kg

DRUGS (1)
  1. OPTIRAY 350 [Suspect]
     Active Substance: IOVERSOL
     Indication: ANGIOGRAM
     Route: 040
     Dates: start: 20200121, end: 20200121

REACTIONS (6)
  - Dyspnoea [Recovering/Resolving]
  - Retching [Recovering/Resolving]
  - Hypotension [Recovering/Resolving]
  - Anaphylactic shock [Recovering/Resolving]
  - Respiratory tract oedema [Recovering/Resolving]
  - Pruritus [Recovering/Resolving]

NARRATIVE: CASE EVENT DATE: 20200121
